FAERS Safety Report 9442187 (Version 1)
Quarter: 2013Q3

REPORT INFORMATION
  Report Type: Spontaneous
  Country: US (occurrence: None)
  Receive Date: 20130805
  Receipt Date: 20130805
  Transmission Date: 20140515
  Serious: Yes (Hospitalization)
  Sender: FDA-Public Use
  Company Number: None

PATIENT
  Age: 70 Year
  Sex: Male
  Weight: 72.98 kg

DRUGS (2)
  1. CYTARABINE [Suspect]
     Dates: start: 20130616
  2. ETOPOSIDE (VP-16) [Suspect]
     Dates: start: 20130616

REACTIONS (8)
  - Syncope [None]
  - Dizziness [None]
  - Asthenia [None]
  - Decreased appetite [None]
  - Dizziness [None]
  - Head injury [None]
  - Nausea [None]
  - Fall [None]
